FAERS Safety Report 14159011 (Version 1)
Quarter: 2017Q4

REPORT INFORMATION
  Report Type: Spontaneous
  Country: CN (occurrence: CN)
  Receive Date: 20171103
  Receipt Date: 20171103
  Transmission Date: 20180321
  Serious: Yes (Other)
  Sender: FDA-Public Use
  Company Number: CN-MERCK KGAA-2033208

PATIENT
  Sex: Female

DRUGS (1)
  1. NOVOTHYROX [Suspect]
     Active Substance: LEVOTHYROXINE SODIUM
     Indication: POST PROCEDURAL HYPOTHYROIDISM
     Route: 048

REACTIONS (10)
  - Hyperthyroidism [None]
  - Pain in extremity [None]
  - Hair colour changes [None]
  - Breast pain [None]
  - Breast swelling [None]
  - Yellow skin [None]
  - Skin discolouration [None]
  - Depressed mood [None]
  - Skin papilloma [None]
  - Neck mass [None]
